FAERS Safety Report 15780998 (Version 1)
Quarter: 2019Q1

REPORT INFORMATION
  Report Type: Spontaneous
  Country: TW (occurrence: TW)
  Receive Date: 20190102
  Receipt Date: 20190102
  Transmission Date: 20190417
  Serious: No
  Sender: FDA-Public Use
  Company Number: TW-ALKEM LABORATORIES LIMITED-TW-ALKEM-2018-04076

PATIENT
  Age: 34 Year
  Sex: Female

DRUGS (5)
  1. MYCOPHENOLATE MOFETIL. [Suspect]
     Active Substance: MYCOPHENOLATE MOFETIL
     Indication: ULCER
     Dosage: 360 MG, UNK
     Route: 065
  2. PREDNISOLONE. [Concomitant]
     Active Substance: PREDNISOLONE
     Indication: ULCER
     Dosage: 10 MG, UNK
     Route: 065
  3. HYDROXYCHLOROQUINE [Concomitant]
     Active Substance: HYDROXYCHLOROQUINE
     Indication: ULCER
     Dosage: 400 MG, UNK
     Route: 065
  4. OMALIZUMAB. [Concomitant]
     Active Substance: OMALIZUMAB
     Indication: ULCER
     Dosage: 300 MG, UNK
     Route: 065
  5. COLCHICINE. [Concomitant]
     Active Substance: COLCHICINE
     Indication: ULCER
     Dosage: 0.5 MG, UNK
     Route: 065

REACTIONS (2)
  - Onychomadesis [Unknown]
  - Therapy non-responder [Unknown]
